FAERS Safety Report 19039367 (Version 1)
Quarter: 2021Q1

REPORT INFORMATION
  Report Type: Report from Study
  Country: TW (occurrence: TW)
  Receive Date: 20210322
  Receipt Date: 20210322
  Transmission Date: 20210420
  Serious: Yes (Hospitalization)
  Sender: FDA-Public Use
  Company Number: TW-ROCHE-2650288

PATIENT
  Age: 63 Year
  Sex: Male

DRUGS (28)
  1. METOCLOPRAMIDE HCL [Concomitant]
     Active Substance: METOCLOPRAMIDE HYDROCHLORIDE
     Dates: start: 20200714, end: 20200715
  2. BISACODYL. [Concomitant]
     Active Substance: BISACODYL
     Indication: HAEMORRHAGIC ASCITES
     Dates: start: 20200709, end: 20200717
  3. GLUCOSE [Concomitant]
     Active Substance: DEXTROSE
  4. ATEZOLIZUMAB. [Suspect]
     Active Substance: ATEZOLIZUMAB
     Indication: GASTRIC CANCER
     Dosage: INFUSION START TIME: 12:34, ENDED: 13:42, INFUSED OVER 1 HR 8 MIN
     Route: 041
     Dates: start: 20200713, end: 20200713
  5. OXYGEN. [Concomitant]
     Active Substance: OXYGEN
     Dates: start: 20200713, end: 20200713
  6. BISACODYL. [Concomitant]
     Active Substance: BISACODYL
     Dates: start: 20200717
  7. DIPHENHYDRAMINE HCL [Concomitant]
     Active Substance: DIPHENHYDRAMINE HYDROCHLORIDE
     Dates: start: 20200713, end: 20200716
  8. BUCLIZINE HCL [Concomitant]
     Dates: start: 20200703, end: 20200716
  9. CEFAZOLIN SODIUM. [Concomitant]
     Active Substance: CEFAZOLIN SODIUM
     Dates: start: 20200710, end: 20200710
  10. DEXTROSE MONOHYDRATE. [Concomitant]
     Active Substance: DEXTROSE MONOHYDRATE
     Dates: start: 20200710, end: 20200710
  11. MORPHINE HCL [Concomitant]
     Active Substance: MORPHINE HYDROCHLORIDE
     Dates: start: 20200710, end: 20200725
  12. TAZOCIN [Concomitant]
     Active Substance: PIPERACILLIN SODIUM\TAZOBACTAM SODIUM
     Indication: INFECTION PROPHYLAXIS
     Dates: start: 20200711, end: 20200720
  13. ERTAPENEM SODIUM [Concomitant]
     Active Substance: ERTAPENEM SODIUM
  14. TRANEXAMIC ACID. [Concomitant]
     Active Substance: TRANEXAMIC ACID
  15. TETRACYCLINE HCL [Concomitant]
     Active Substance: TETRACYCLINE HYDROCHLORIDE
     Dates: start: 20200713, end: 20200716
  16. ACETAMINOPHEN. [Concomitant]
     Active Substance: ACETAMINOPHEN
     Dosage: 22:47:00
     Dates: start: 20200710, end: 20200715
  17. CEFMETAZOLE SODIUM [Concomitant]
     Active Substance: CEFMETAZOLE SODIUM
     Dates: start: 20200710, end: 20200711
  18. KETOROLAC TROMETHAMINE. [Concomitant]
     Active Substance: KETOROLAC TROMETHAMINE
     Dates: start: 20200711, end: 20200711
  19. TENOFOVIR ALAFENAMIDE [Concomitant]
     Active Substance: TENOFOVIR ALAFENAMIDE
     Dates: start: 20200609
  20. ALBUMIN [Concomitant]
     Active Substance: ALBUMIN HUMAN
     Dates: start: 20200710, end: 20200712
  21. ULTRACET [Concomitant]
     Active Substance: ACETAMINOPHEN\TRAMADOL HYDROCHLORIDE
     Dates: start: 20200712, end: 20200727
  22. SODIUM CHLORIDE. [Concomitant]
     Active Substance: SODIUM CHLORIDE
  23. HYDROCORTISONE SODIUM SUCCINATE [Concomitant]
     Active Substance: HYDROCORTISONE SODIUM SUCCINATE
     Dates: start: 20200713, end: 20200713
  24. FAT EMULSION NOS [Concomitant]
     Active Substance: EGG PHOSPHOLIPIDS\SAFFLOWER OIL\SOYBEAN OIL
  25. NAPROXEN. [Concomitant]
     Active Substance: NAPROXEN
     Dates: start: 20200711, end: 20200719
  26. PANTOPRAZOLE SODIUM. [Concomitant]
     Active Substance: PANTOPRAZOLE SODIUM
     Dates: start: 20200715, end: 20200729
  27. PHYTONADIONE. [Concomitant]
     Active Substance: PHYTONADIONE
  28. DIMETHICONE. [Concomitant]
     Active Substance: DIMETHICONE
     Dates: start: 20200717, end: 20200727

REACTIONS (2)
  - Soft tissue infection [Not Recovered/Not Resolved]
  - Skin infection [Not Recovered/Not Resolved]

NARRATIVE: CASE EVENT DATE: 20200720
